FAERS Safety Report 20405548 (Version 1)
Quarter: 2022Q1

REPORT INFORMATION
  Report Type: Spontaneous
  Country: CN (occurrence: CN)
  Receive Date: 20220131
  Receipt Date: 20220131
  Transmission Date: 20220423
  Serious: Yes (Hospitalization)
  Sender: FDA-Public Use
  Company Number: CN-GLAXOSMITHKLINE-CNCH2022APC004257

PATIENT
  Age: 94 Year
  Sex: Male

DRUGS (1)
  1. IBUPROFEN [Suspect]
     Active Substance: IBUPROFEN
     Indication: Myalgia
     Dosage: 3 DF, QD
     Route: 048
     Dates: start: 20220125, end: 20220125

REACTIONS (3)
  - Extrapyramidal disorder [Recovering/Resolving]
  - Tremor [Recovered/Resolved]
  - Discomfort [Recovered/Resolved]

NARRATIVE: CASE EVENT DATE: 20220125
